APPROVED DRUG PRODUCT: NORETHINDRONE AND ETHINYL ESTRADIOL
Active Ingredient: ETHINYL ESTRADIOL; NORETHINDRONE
Strength: 0.035MG;0.5MG
Dosage Form/Route: TABLET;ORAL-21
Application: A070684 | Product #001
Applicant: WATSON LABORATORIES INC
Approved: Jan 29, 1987 | RLD: No | RS: No | Type: DISCN